FAERS Safety Report 17237468 (Version 6)
Quarter: 2020Q1

REPORT INFORMATION
  Report Type: Report from Study
  Country: None (occurrence: US)
  Receive Date: 20200106
  Receipt Date: 20200303
  Transmission Date: 20200409
  Serious: Yes (Other)
  Sender: FDA-Public Use
  Company Number: US-ABBVIE-18K-163-2455883-00

PATIENT
  Age: 60 Year
  Sex: Female
  Weight: 54.03 kg

DRUGS (7)
  1. HUMIRA [Suspect]
     Active Substance: ADALIMUMAB
     Indication: RHEUMATOID ARTHRITIS
     Route: 058
     Dates: start: 201906
  2. NP THYROID [Suspect]
     Active Substance: LEVOTHYROXINE\LIOTHYRONINE
     Indication: HYSTERECTOMY
     Dosage: BEFORE MEAL IN THE MORNING
     Route: 048
  3. COSENTYX [Suspect]
     Active Substance: SECUKINUMAB
     Indication: ARTHRITIS
     Route: 058
  4. CIMZIA [Concomitant]
     Active Substance: CERTOLIZUMAB PEGOL
     Indication: PRODUCT USED FOR UNKNOWN INDICATION
  5. HUMIRA [Suspect]
     Active Substance: ADALIMUMAB
     Indication: COLITIS ULCERATIVE
     Route: 058
     Dates: start: 2018
  6. HUMIRA [Suspect]
     Active Substance: ADALIMUMAB
     Indication: ANKYLOSING SPONDYLITIS
     Route: 058
  7. NP THYROID [Suspect]
     Active Substance: LEVOTHYROXINE\LIOTHYRONINE
     Indication: THYROID HORMONES DECREASED

REACTIONS (24)
  - Foot fracture [Unknown]
  - Weight decreased [Unknown]
  - Herpes virus infection [Unknown]
  - Therapeutic product effect decreased [Unknown]
  - Hypertension [Unknown]
  - Injection site pain [Unknown]
  - Device issue [Unknown]
  - Bipolar disorder [Unknown]
  - Back pain [Unknown]
  - Rheumatoid arthritis [Unknown]
  - Solar lentigo [Unknown]
  - Alopecia [Recovered/Resolved]
  - Pain [Recovering/Resolving]
  - Colitis ulcerative [Recovered/Resolved]
  - Therapeutic response shortened [Recovering/Resolving]
  - Thyroid disorder [Unknown]
  - Product dispensing error [Unknown]
  - Large intestinal haemorrhage [Unknown]
  - Alopecia [Not Recovered/Not Resolved]
  - Arthralgia [Unknown]
  - Mobility decreased [Unknown]
  - Scoliosis [Not Recovered/Not Resolved]
  - Mood altered [Unknown]
  - Hypertension [Unknown]

NARRATIVE: CASE EVENT DATE: 2018
